FAERS Safety Report 13199383 (Version 8)
Quarter: 2018Q2

REPORT INFORMATION
  Report Type: Report from Study
  Country: None (occurrence: US)
  Receive Date: 20170208
  Receipt Date: 20180413
  Transmission Date: 20180711
  Serious: Yes (Hospitalization, Other)
  Sender: FDA-Public Use
  Company Number: US-ABBVIE-16K-163-1824090-00

PATIENT
  Age: 67 Year
  Sex: Female

DRUGS (7)
  1. PREDNISONE. [Concomitant]
     Active Substance: PREDNISONE
     Indication: PRODUCT USED FOR UNKNOWN INDICATION
  2. HUMIRA [Suspect]
     Active Substance: ADALIMUMAB
     Indication: PSORIATIC ARTHROPATHY
  3. HUMIRA [Suspect]
     Active Substance: ADALIMUMAB
     Indication: RHEUMATOID ARTHRITIS
     Route: 058
     Dates: start: 20030515
  4. METHOTREXATE. [Suspect]
     Active Substance: METHOTREXATE
     Indication: PRODUCT USED FOR UNKNOWN INDICATION
     Route: 065
  5. PREDNISONE. [Concomitant]
     Active Substance: PREDNISONE
  6. METHOTREXATE. [Suspect]
     Active Substance: METHOTREXATE
     Route: 065
  7. PREDNISONE. [Concomitant]
     Active Substance: PREDNISONE

REACTIONS (14)
  - Condition aggravated [Recovered/Resolved]
  - Osteoarthritis [Unknown]
  - Cataract [Unknown]
  - Peripheral swelling [Unknown]
  - Ocular hyperaemia [Not Recovered/Not Resolved]
  - Muscular weakness [Not Recovered/Not Resolved]
  - Swelling [Unknown]
  - Peripheral swelling [Recovered/Resolved]
  - Urinary tract obstruction [Recovering/Resolving]
  - Alopecia [Unknown]
  - Back pain [Unknown]
  - Sepsis [Recovering/Resolving]
  - Influenza [Recovered/Resolved]
  - Urinary tract infection [Recovered/Resolved]

NARRATIVE: CASE EVENT DATE: 201612
